FAERS Safety Report 9445283 (Version 3)
Quarter: 2013Q3

REPORT INFORMATION
  Report Type: Spontaneous
  Country: VN (occurrence: VN)
  Receive Date: 20130807
  Receipt Date: 20130819
  Transmission Date: 20140515
  Serious: Yes (Hospitalization)
  Sender: FDA-Public Use
  Company Number: VN-GLAXOSMITHKLINE-B0913747A

PATIENT
  Age: 7 Month
  Sex: 0

DRUGS (1)
  1. VENTOLIN [Suspect]
     Indication: ASTHMA
     Route: 042
     Dates: start: 20130731, end: 20130731

REACTIONS (5)
  - Heart rate increased [Recovered/Resolved]
  - Dyspnoea [Recovered/Resolved]
  - Rash [Recovered/Resolved]
  - Crying [Unknown]
  - Incorrect route of drug administration [Unknown]
